FAERS Safety Report 20514605 (Version 1)
Quarter: 2022Q1

REPORT INFORMATION
  Report Type: Report from Study
  Country: GB (occurrence: GB)
  Receive Date: 20220224
  Receipt Date: 20220224
  Transmission Date: 20220424
  Serious: Yes (Other)
  Sender: FDA-Public Use
  Company Number: GB-MYLANLABS-2022M1014624

PATIENT
  Sex: Female

DRUGS (1)
  1. ANASTROZOLE [Suspect]
     Active Substance: ANASTROZOLE
     Indication: Ovarian stromal cancer
     Dosage: 1 MILLIGRAM, QD
     Route: 065

REACTIONS (2)
  - Arthralgia [Unknown]
  - Off label use [Unknown]
